FAERS Safety Report 18665487 (Version 2)
Quarter: 2021Q2

REPORT INFORMATION
  Report Type: Report from Study
  Country: CA (occurrence: CA)
  Receive Date: 20201225
  Receipt Date: 20210630
  Transmission Date: 20210717
  Serious: Yes (Hospitalization)
  Sender: FDA-Public Use
  Company Number: CA-CELLTRION INC.-2020CA033537

PATIENT

DRUGS (2)
  1. TRUXIMA [Suspect]
     Active Substance: RITUXIMAB-ABBS
     Dosage: UNK
     Route: 065
     Dates: start: 20201204, end: 20201204
  2. TRUXIMA [Suspect]
     Active Substance: RITUXIMAB-ABBS
     Indication: PRODUCT USED FOR UNKNOWN INDICATION
     Dosage: 1000 MG, D1+D15
     Route: 042
     Dates: start: 20201204

REACTIONS (4)
  - Product dose omission issue [Unknown]
  - Condition aggravated [Not Recovered/Not Resolved]
  - Somnolence [Unknown]
  - Therapy cessation [Unknown]
